FAERS Safety Report 19575572 (Version 2)
Quarter: 2022Q1

REPORT INFORMATION
  Report Type: Other
  Country: DE (occurrence: DE)
  Receive Date: 20210719
  Receipt Date: 20220322
  Transmission Date: 20220423
  Serious: No
  Sender: FDA-Public Use
  Company Number: None

PATIENT
  Age: 40 Year
  Sex: Female
  Weight: 79 kg

DRUGS (3)
  1. SERTRALINE [Suspect]
     Active Substance: SERTRALINE HYDROCHLORIDE
     Indication: Perinatal depression
     Dosage: UNK
     Route: 048
     Dates: start: 20160310, end: 20171220
  2. MIRTAZAPINE [Suspect]
     Active Substance: MIRTAZAPINE
     Indication: Perinatal depression
     Dosage: UNK
     Route: 048
     Dates: end: 201608
  3. CITALOPRAM [Suspect]
     Active Substance: CITALOPRAM HYDROBROMIDE
     Indication: Perinatal depression
     Dosage: APPLICATION PERIOD UNKNOWN
     Route: 048

REACTIONS (2)
  - Loss of libido [Recovered/Resolved]
  - Anorgasmia [Recovering/Resolving]

NARRATIVE: CASE EVENT DATE: 20170101
